FAERS Safety Report 23336112 (Version 2)
Quarter: 2024Q4

REPORT INFORMATION
  Report Type: Report from Study
  Country: JP (occurrence: JP)
  Receive Date: 20231225
  Receipt Date: 20241027
  Transmission Date: 20250115
  Serious: Yes (Life-Threatening)
  Sender: ALEXION PHARMACEUTICALS
  Company Number: 2023A291536

PATIENT
  Age: 52 Year
  Weight: 52 kg

DRUGS (24)
  1. IMFINZI [Suspect]
     Active Substance: DURVALUMAB
     Indication: Non-small cell lung cancer
     Dosage: 1500 MILLIGRAM, Q3W
  2. IMFINZI [Suspect]
     Active Substance: DURVALUMAB
     Dosage: 1500 MILLIGRAM, Q3W
  3. IMFINZI [Suspect]
     Active Substance: DURVALUMAB
     Dosage: 1500 MILLIGRAM, Q3W
  4. IMFINZI [Suspect]
     Active Substance: DURVALUMAB
     Dosage: 1500 MILLIGRAM, Q3W
  5. IMJUDO [Suspect]
     Active Substance: TREMELIMUMAB\TREMELIMUMAB-ACTL
     Indication: Non-small cell lung cancer
     Dosage: 75 MILLIGRAM, Q3W
  6. IMJUDO [Suspect]
     Active Substance: TREMELIMUMAB\TREMELIMUMAB-ACTL
     Dosage: 75 MILLIGRAM, Q3W
  7. IMJUDO [Suspect]
     Active Substance: TREMELIMUMAB\TREMELIMUMAB-ACTL
     Dosage: 75 MILLIGRAM, Q3W
  8. IMJUDO [Suspect]
     Active Substance: TREMELIMUMAB\TREMELIMUMAB-ACTL
     Dosage: 75 MILLIGRAM, Q3W
  9. CISPLATIN [Suspect]
     Active Substance: CISPLATIN
     Indication: Non-small cell lung cancer
     Dosage: DOSE UNKNOWN
     Route: 065
  10. CISPLATIN [Suspect]
     Active Substance: CISPLATIN
     Dosage: DOSE UNKNOWN
  11. CISPLATIN [Suspect]
     Active Substance: CISPLATIN
     Dosage: DOSE UNKNOWN
     Route: 065
  12. CISPLATIN [Suspect]
     Active Substance: CISPLATIN
     Dosage: DOSE UNKNOWN
  13. CISPLATIN [Suspect]
     Active Substance: CISPLATIN
     Dosage: NUMBER OF SEPARATE DOSAGES UNKNOWN
     Route: 065
  14. CISPLATIN [Suspect]
     Active Substance: CISPLATIN
     Dosage: NUMBER OF SEPARATE DOSAGES UNKNOWN
  15. CISPLATIN [Suspect]
     Active Substance: CISPLATIN
     Dosage: NUMBER OF SEPARATE DOSAGES UNKNOWN
     Route: 065
  16. CISPLATIN [Suspect]
     Active Substance: CISPLATIN
     Dosage: NUMBER OF SEPARATE DOSAGES UNKNOWN
  17. GEMCITABINE [Suspect]
     Active Substance: GEMCITABINE
     Indication: Non-small cell lung cancer
     Dosage: NUMBER OF SEPARATE DOSAGES UNKNOWN
     Route: 065
  18. GEMCITABINE [Suspect]
     Active Substance: GEMCITABINE
     Dosage: NUMBER OF SEPARATE DOSAGES UNKNOWN
  19. GEMCITABINE [Suspect]
     Active Substance: GEMCITABINE
     Dosage: NUMBER OF SEPARATE DOSAGES UNKNOWN
     Route: 065
  20. GEMCITABINE [Suspect]
     Active Substance: GEMCITABINE
     Dosage: NUMBER OF SEPARATE DOSAGES UNKNOWN
  21. GEMCITABINE [Suspect]
     Active Substance: GEMCITABINE
     Dosage: DOSE UNKNOWN
     Route: 065
  22. GEMCITABINE [Suspect]
     Active Substance: GEMCITABINE
     Dosage: DOSE UNKNOWN
  23. GEMCITABINE [Suspect]
     Active Substance: GEMCITABINE
     Dosage: DOSE UNKNOWN
     Route: 065
  24. GEMCITABINE [Suspect]
     Active Substance: GEMCITABINE
     Dosage: DOSE UNKNOWN

REACTIONS (2)
  - Anaemia [Recovering/Resolving]
  - Platelet count decreased [Recovering/Resolving]
